FAERS Safety Report 20632206 (Version 1)
Quarter: 2022Q1

REPORT INFORMATION
  Report Type: Report from Study
  Country: CL (occurrence: CL)
  Receive Date: 20220324
  Receipt Date: 20220324
  Transmission Date: 20220423
  Serious: Yes (Hospitalization)
  Sender: FDA-Public Use
  Company Number: CL-NOVARTISPH-NVSC2022CL065125

PATIENT
  Age: 17 Year
  Sex: Male

DRUGS (1)
  1. OMNITROPE [Suspect]
     Active Substance: SOMATROPIN
     Indication: Product used for unknown indication
     Dosage: 1 MG, QD (0.9 IU)
     Route: 058
     Dates: start: 20181119

REACTIONS (3)
  - Hypernatraemia [Recovered/Resolved]
  - Hypocalcaemia [Recovered/Resolved]
  - Illness [Unknown]

NARRATIVE: CASE EVENT DATE: 20220304
